FAERS Safety Report 6363122-4 (Version None)
Quarter: 2009Q3

REPORT INFORMATION
  Report Type: 
  Country: None (occurrence: None)
  Receive Date: 20090919
  Receipt Date: 20090618
  Transmission Date: 20100115
  Serious: No
  Sender: FDA-Public Use
  Company Number: US-ABBOTT-09P-163-0580901-00

PATIENT
  Sex: Female
  Weight: 49.486 kg

DRUGS (1)
  1. HUMIRA [Suspect]
     Indication: RHEUMATOID ARTHRITIS
     Route: 058
     Dates: start: 20090317, end: 20090616

REACTIONS (2)
  - OEDEMA PERIPHERAL [None]
  - RASH [None]
